FAERS Safety Report 24550787 (Version 1)
Quarter: 2024Q4

REPORT INFORMATION
  Report Type: Spontaneous
  Country: MX (occurrence: MX)
  Receive Date: 20241025
  Receipt Date: 20241025
  Transmission Date: 20250115
  Serious: No
  Sender: JAZZ
  Company Number: MX-JAZZ PHARMACEUTICALS-2024-MX-015819

PATIENT
  Sex: Male

DRUGS (1)
  1. DEFITELIO [Suspect]
     Active Substance: DEFIBROTIDE SODIUM
     Indication: Venoocclusive liver disease
     Dosage: 10 MILLIGRAM

REACTIONS (2)
  - Inability to afford medication [Unknown]
  - Intentional product use issue [Unknown]
